FAERS Safety Report 5503623-1 (Version None)
Quarter: 2007Q4

REPORT INFORMATION
  Report Type: 
  Country: None (occurrence: None)
  Receive Date: 20071030
  Receipt Date: 20071023
  Transmission Date: 20080405
  Serious: Yes (Life-Threatening, Hospitalization)
  Sender: FDA-Public Use
  Company Number: TCI2007A04839

PATIENT
  Age: 66 Year
  Sex: Female

DRUGS (7)
  1. ACTOS [Suspect]
     Indication: TYPE 2 DIABETES MELLITUS
     Dosage: 15 MG (15 MG, 1 IN 1 D) PER ORAL
     Route: 048
     Dates: start: 20070131, end: 20070619
  2. DIOVAN [Concomitant]
  3. NORVASC [Concomitant]
  4. FAMOTIDINE [Concomitant]
  5. PRAVASTATIN [Concomitant]
  6. MEDET (METFORMIN HYDROCHLORIDE) [Concomitant]
  7. GLIMICRON (GLICLAZIDE) [Concomitant]

REACTIONS (4)
  - BRONCHOPNEUMONIA [None]
  - CARDIAC FAILURE ACUTE [None]
  - DIARRHOEA [None]
  - MITRAL VALVE INCOMPETENCE [None]
